FAERS Safety Report 6668562-1 (Version None)
Quarter: 2010Q2

REPORT INFORMATION
  Report Type: 
  Country: None (occurrence: None)
  Receive Date: 20100406
  Receipt Date: 20090805
  Transmission Date: 20101027
  Serious: Yes (Death, Hospitalization, Other)
  Sender: FDA-Public Use
  Company Number: US-ALEXION-A200900516

PATIENT
  Sex: Male

DRUGS (22)
  1. SOLIRIS [Suspect]
     Indication: PAROXYSMAL NOCTURNAL HAEMOGLOBINURIA
     Dosage: 600 MG,
     Route: 042
     Dates: start: 20071129, end: 20071219
  2. SOLIRIS [Suspect]
     Dosage: 900 MG, Q2W
     Route: 042
     Dates: start: 20071226
  3. TYLENOL (CAPLET) [Concomitant]
     Dosage: 650 MG, PRN
  4. TYLENOL W/ CODEINE NO. 3 [Concomitant]
     Dosage: 1-2 TABS, Q6H, PRN
  5. ACETYLCYSTEINE [Concomitant]
     Dosage: 600 MG, BID
     Route: 042
  6. LUMIGAN [Concomitant]
     Dosage: 1 GTT, QPM
  7. OSCAL 500-D [Concomitant]
     Dosage: 2 TABS, BID
  8. ROBITUSSIN AC                      /00693301/ [Concomitant]
     Dosage: 10 ML, Q4H, PRN
  9. BENADRYL [Concomitant]
     Dosage: 25 MG, PRN
  10. FOLVITE                            /00024201/ [Concomitant]
     Dosage: 1 MG, QD
  11. LASIX [Concomitant]
     Dosage: 40 MG, QD
  12. GLUCAGEN                           /00157803/ [Concomitant]
     Dosage: 1 MG, PRN
  13. GLUCOSE [Concomitant]
     Dosage: 15 G, PRN
  14. NOVOLOG [Concomitant]
     Dosage: UNK
  15. HEPARIN SODIUM 25,000 UNITS IN DEXTROSE 5% [Concomitant]
     Dosage: 100 IU/ML, CONTINUOUS
  16. PREVACID [Concomitant]
     Dosage: 30 MG, QD
  17. CEPACOL                            /00283202/ [Concomitant]
     Dosage: 1 Q2H, PRN
  18. MULTIVITAMIN                       /00831701/ [Concomitant]
     Dosage: 1 CAP, QD
  19. DEXTROSE 50% [Concomitant]
     Dosage: 25 ML, PRN
  20. SODIUM CHLORIDE [Concomitant]
     Dosage: CONTINOUS
     Route: 042
  21. MIRALAX [Concomitant]
     Dosage: 17 G, QD
  22. MYLICON [Concomitant]
     Dosage: 40 MG, QID, PRN
     Route: 048

REACTIONS (10)
  - ASCITES [None]
  - ASTHENIA [None]
  - BUDD-CHIARI SYNDROME [None]
  - HAEMOPTYSIS [None]
  - LARYNGEAL INJURY [None]
  - MYOCARDIAL INFARCTION [None]
  - PORTAL VEIN THROMBOSIS [None]
  - PULMONARY HAEMORRHAGE [None]
  - PULMONARY OEDEMA [None]
  - RENAL FAILURE [None]
